FAERS Safety Report 25727742 (Version 2)
Quarter: 2025Q3

REPORT INFORMATION
  Report Type: Spontaneous
  Country: US (occurrence: US)
  Receive Date: 20250826
  Receipt Date: 20250909
  Transmission Date: 20251020
  Serious: Yes (Hospitalization, Other)
  Sender: TEVA
  Company Number: US-TEVA-VS-3364262

PATIENT
  Age: 91 Year
  Sex: Male

DRUGS (4)
  1. GEMCITABINE [Suspect]
     Active Substance: GEMCITABINE
     Indication: Non-small cell lung cancer stage IV
     Route: 065
     Dates: start: 201512, end: 201512
  2. IRINOTECAN [Suspect]
     Active Substance: IRINOTECAN
     Indication: Non-small cell lung cancer stage IV
     Route: 065
     Dates: start: 201608, end: 201906
  3. PACLITAXEL [Suspect]
     Active Substance: PACLITAXEL
     Indication: Non-small cell lung cancer stage IV
     Route: 065
     Dates: start: 201512, end: 201603
  4. NIVOLUMAB [Suspect]
     Active Substance: NIVOLUMAB
     Indication: Non-small cell lung cancer stage IV
     Route: 065
     Dates: start: 201603, end: 201607

REACTIONS (3)
  - Drug ineffective [Unknown]
  - Pneumonitis [Unknown]
  - Myelosuppression [Unknown]

NARRATIVE: CASE EVENT DATE: 20151201
